FAERS Safety Report 11618494 (Version 1)
Quarter: 2015Q4

REPORT INFORMATION
  Report Type: Report from Study
  Country: US (occurrence: US)
  Receive Date: 20151012
  Receipt Date: 20151012
  Transmission Date: 20160304
  Serious: Yes (Other)
  Sender: FDA-Public Use
  Company Number: US-PFIZER INC-2015329166

PATIENT
  Sex: Male

DRUGS (2)
  1. LYCOPENE [Suspect]
     Active Substance: LYCOPENE
     Indication: PROSTATE CANCER METASTATIC
     Dosage: 150 MG, DAILY
  2. DOCETAXEL. [Suspect]
     Active Substance: DOCETAXEL
     Indication: PROSTATE CANCER METASTATIC
     Dosage: 75 MG/M2, IV Q 21 DAYS
     Route: 042

REACTIONS (1)
  - Pulmonary embolism [Unknown]
